FAERS Safety Report 5766900-5 (Version None)
Quarter: 2008Q2

REPORT INFORMATION
  Report Type: 
  Country: None (occurrence: None)
  Receive Date: 20080611
  Receipt Date: 20080526
  Transmission Date: 20081010
  Serious: Yes (Other)
  Sender: FDA-Public Use
  Company Number: US-PFIZER INC-2008044677

PATIENT
  Sex: Female
  Weight: 56.8 kg

DRUGS (2)
  1. CHANTIX [Suspect]
     Indication: SMOKING CESSATION THERAPY
     Dates: start: 20080524, end: 20080527
  2. ALPRAZOLAM [Suspect]
     Indication: BIPOLAR I DISORDER

REACTIONS (11)
  - AGITATION [None]
  - ANGER [None]
  - BLOOD GLUCOSE DECREASED [None]
  - CONFUSIONAL STATE [None]
  - DEPRESSION [None]
  - DRUG DEPENDENCE [None]
  - FRUSTRATION [None]
  - HOMICIDAL IDEATION [None]
  - INSOMNIA [None]
  - IRRITABLE BOWEL SYNDROME [None]
  - THINKING ABNORMAL [None]
